FAERS Safety Report 5817523-0 (Version None)
Quarter: 2008Q3

REPORT INFORMATION
  Report Type: 
  Country: None (occurrence: None)
  Receive Date: 20080722
  Receipt Date: 20080714
  Transmission Date: 20090109
  Serious: Yes (Hospitalization)
  Sender: FDA-Public Use
  Company Number: US-JNJFOC-20070905654

PATIENT
  Sex: Female
  Weight: 141.07 kg

DRUGS (2)
  1. ORTHO EVRA [Suspect]
     Indication: CONTRACEPTION
     Route: 062
     Dates: start: 20030101, end: 20030701
  2. DYAZIDE [Concomitant]

REACTIONS (14)
  - ABORTION SPONTANEOUS [None]
  - ANXIETY [None]
  - BLOOD PRESSURE INCREASED [None]
  - COSTOCHONDRITIS [None]
  - DEEP VEIN THROMBOSIS [None]
  - DRUG EXPOSURE DURING PREGNANCY [None]
  - HEART RATE INCREASED [None]
  - HEART RATE IRREGULAR [None]
  - JOINT SWELLING [None]
  - MUSCLE SPASMS [None]
  - PALPITATIONS [None]
  - PANIC ATTACK [None]
  - PULMONARY EMBOLISM [None]
  - TREATMENT NONCOMPLIANCE [None]
